FAERS Safety Report 5775286-1 (Version None)
Quarter: 2008Q2

REPORT INFORMATION
  Report Type: 
  Country: None (occurrence: None)
  Receive Date: 20080616
  Receipt Date: 20080616
  Transmission Date: 20081010
  Serious: Yes (Hospitalization)
  Sender: FDA-Public Use
  Company Number: None

PATIENT
  Sex: Female
  Weight: 92.5 kg

DRUGS (2)
  1. DECITABINE 50 MG [Suspect]
     Indication: OVARIAN CANCER
     Dosage: 20 MG/ M2 1 HOUR X 5 DAYS IV
     Route: 042
     Dates: start: 20080512, end: 20080516
  2. PERCOCET [Concomitant]

REACTIONS (2)
  - HEADACHE [None]
  - PYREXIA [None]
